FAERS Safety Report 9271344 (Version 1)
Quarter: 2013Q2

REPORT INFORMATION
  Report Type: Spontaneous
  Country: US (occurrence: US)
  Receive Date: 20130506
  Receipt Date: 20130506
  Transmission Date: 20140414
  Serious: No
  Sender: FDA-Public Use
  Company Number: US-PFIZER INC-2013139131

PATIENT
  Age: 48 Year
  Sex: Female
  Weight: 136.5 kg

DRUGS (4)
  1. LYRICA [Suspect]
     Indication: FIBROMYALGIA
     Dosage: 100 MG, 2X/DAY
     Route: 048
     Dates: end: 20130420
  2. PROZAC [Concomitant]
     Dosage: 40 MG, 2X/DAY
  3. CYMBALTA [Concomitant]
     Dosage: 60 MG, 2X/DAY
  4. MELOXICAM [Concomitant]
     Dosage: 15 MG, 1X/DAY

REACTIONS (5)
  - Vascular pain [Unknown]
  - Musculoskeletal pain [Unknown]
  - Arthralgia [Unknown]
  - Menopausal symptoms [Unknown]
  - Night sweats [Unknown]
